FAERS Safety Report 20542854 (Version 1)
Quarter: 2022Q1

REPORT INFORMATION
  Report Type: Spontaneous
  Country: US (occurrence: US)
  Receive Date: 20220302
  Receipt Date: 20220302
  Transmission Date: 20220424
  Serious: No
  Sender: FDA-Public Use
  Company Number: US-PFIZER INC-2021757561

PATIENT
  Age: 33 Year
  Sex: Female
  Weight: 67.075 kg

DRUGS (4)
  1. XELJANZ [Suspect]
     Active Substance: TOFACITINIB CITRATE
     Indication: Illness
     Dosage: 10 MG, 2X/DAY
     Route: 048
  2. FLUOXETINE HYDROCHLORIDE [Concomitant]
     Active Substance: FLUOXETINE HYDROCHLORIDE
     Dosage: 20 MG
  3. STELARA [Concomitant]
     Active Substance: USTEKINUMAB
     Dosage: 90 MG/ML
  4. UCERIS [Concomitant]
     Active Substance: BUDESONIDE
     Dosage: 9 MG

REACTIONS (1)
  - Drug ineffective [Unknown]
